FAERS Safety Report 16098251 (Version 1)
Quarter: 2019Q1

REPORT INFORMATION
  Report Type: Spontaneous
  Country: ES (occurrence: ES)
  Receive Date: 20190321
  Receipt Date: 20190321
  Transmission Date: 20190418
  Serious: Yes (Hospitalization)
  Sender: FDA-Public Use
  Company Number: PHHY2019ES062451

PATIENT
  Age: 6 Year

DRUGS (5)
  1. OLANZAPINE. [Suspect]
     Active Substance: OLANZAPINE
     Indication: BIPOLAR DISORDER
     Dosage: 30 MG, QD (HIGH DOSE)
     Route: 048
  2. CLOTIAPINE [Suspect]
     Active Substance: CLOTHIAPINE
     Indication: BIPOLAR DISORDER
     Dosage: 80 MG, QD (HIGH DOSE)
     Route: 048
  3. LITHIUM CARBONATE. [Suspect]
     Active Substance: LITHIUM CARBONATE
     Indication: BIPOLAR DISORDER
     Dosage: 1000 MG, QD
     Route: 065
  4. LITHIUM CARBONATE. [Suspect]
     Active Substance: LITHIUM CARBONATE
     Dosage: 1200 MG, QD
     Route: 065
  5. HALOPERIDOL. [Suspect]
     Active Substance: HALOPERIDOL
     Indication: BIPOLAR DISORDER
     Dosage: 15 MG, QD (HIGH DOSE)
     Route: 048

REACTIONS (1)
  - Toxicity to various agents [Not Recovered/Not Resolved]
